FAERS Safety Report 20582984 (Version 1)
Quarter: 2022Q1

REPORT INFORMATION
  Report Type: Spontaneous
  Country: PL (occurrence: PL)
  Receive Date: 20220311
  Receipt Date: 20220311
  Transmission Date: 20220424
  Serious: Yes (Other)
  Sender: FDA-Public Use
  Company Number: PL-Dr. FALK Pharma GmbH-SA-012-22

PATIENT
  Sex: Female

DRUGS (3)
  1. MESALAMINE [Suspect]
     Active Substance: MESALAMINE
     Indication: Crohn^s disease
     Dosage: 3 BOXES- FIRST BOX- 2 SUPPOSITORIES TAKEN, SECOND BOX- 4 SUPPOSITORIES TAKEN, THIRD BOX- 10 SUPPOSIT
     Route: 065
     Dates: start: 202112, end: 202112
  2. MESALAMINE [Suspect]
     Active Substance: MESALAMINE
     Dosage: 500 MG
     Route: 065
     Dates: start: 2017
  3. SALOFALK [Concomitant]
     Indication: Product used for unknown indication
     Route: 065

REACTIONS (3)
  - Administration site pain [Recovered/Resolved]
  - Hypersensitivity [Recovered/Resolved]
  - Off label use [Unknown]

NARRATIVE: CASE EVENT DATE: 20211201
